FAERS Safety Report 4721290-1 (Version None)
Quarter: 2005Q3

REPORT INFORMATION
  Report Type: 
  Country: None (occurrence: None)
  Receive Date: 20050721
  Receipt Date: 20040423
  Transmission Date: 20060218
  Serious: Yes (Other)
  Sender: FDA-Public Use
  Company Number: US-BRISTOL-MYERS SQUIBB COMPANY-12569109

PATIENT
  Age: 76 Year
  Sex: Male

DRUGS (16)
  1. COUMADIN [Suspect]
     Indication: INTRACARDIAC THROMBUS
     Route: 048
     Dates: start: 20040105, end: 20040112
  2. LOVENOX [Suspect]
     Indication: INTRACARDIAC THROMBUS
     Dates: start: 20040102, end: 20040108
  3. DONEPEZIL HCL [Concomitant]
  4. RISPERIDONE [Concomitant]
     Dosage: AT BEDTIME
  5. LORAZEPAM [Concomitant]
     Indication: AGITATION
     Dosage: EVERY 4 HRS AS NEEDED FOR SEVERE AGITATION
  6. DIGOXIN [Concomitant]
  7. FUROSEMIDE [Concomitant]
  8. LISINOPRIL [Concomitant]
     Dosage: EVERY 12 HOURS, HOLD IF SBP { 100 MMHG
  9. NITROGLYCERIN [Concomitant]
     Dosage: PATCH ON DAILY, REMOVE AT BEDTIME MG/ HR
     Route: 060
  10. LOVASTATIN [Concomitant]
     Dosage: PER PEG
     Route: 050
  11. ALBUTEROL [Concomitant]
     Dosage: EVERY 4 HOURS NEBULIZER
     Route: 055
  12. ATROVENT [Concomitant]
     Dosage: EVERY 8 HOURS NEBULIZER
     Route: 055
  13. RANITIDINE [Concomitant]
  14. QUININE SULFATE [Concomitant]
  15. ZINC OXIDE [Concomitant]
     Dosage: APPLY TO BUTTOCKS TWICE DAILY
     Route: 061
  16. FINASTERIDE [Concomitant]

REACTIONS (6)
  - ALANINE AMINOTRANSFERASE INCREASED [None]
  - ASPARTATE AMINOTRANSFERASE INCREASED [None]
  - BLOOD CREATININE INCREASED [None]
  - FAT EMBOLISM [None]
  - INTERNATIONAL NORMALISED RATIO INCREASED [None]
  - SKIN DISCOLOURATION [None]
